FAERS Safety Report 16443850 (Version 1)
Quarter: 2019Q2

REPORT INFORMATION
  Report Type: Spontaneous
  Country: GB (occurrence: GB)
  Receive Date: 20190618
  Receipt Date: 20190618
  Transmission Date: 20190711
  Serious: Yes (Other)
  Sender: FDA-Public Use
  Company Number: GB-ACCORD-133473

PATIENT
  Age: 46 Year
  Sex: Male

DRUGS (3)
  1. AMITRIPTYLINE [Suspect]
     Active Substance: AMITRIPTYLINE
     Indication: BACK PAIN
     Route: 048
  2. NAPROXEN. [Concomitant]
     Active Substance: NAPROXEN
  3. COCODAMOL [Concomitant]
     Active Substance: ACETAMINOPHEN\CODEINE PHOSPHATE

REACTIONS (1)
  - Gout [Recovering/Resolving]

NARRATIVE: CASE EVENT DATE: 20170424
